FAERS Safety Report 8879728 (Version 2)
Quarter: 2012Q4

REPORT INFORMATION
  Report Type: 
  Country: US (occurrence: US)
  Receive Date: 20121101
  Receipt Date: 20121113
  Transmission Date: 20130627
  Serious: Yes (Life-Threatening)
  Sender: FDA-Public Use
  Company Number: US-009507513-1210USA012399

PATIENT
  Sex: Male

DRUGS (6)
  1. LOSARTAN POTASSIUM TABLETS [Suspect]
     Dosage: UNK
     Route: 048
     Dates: start: 2011
  2. OMEGA-3 MARINE TRIGLYCERIDES [Concomitant]
  3. MILK THISTLE [Concomitant]
  4. CYANOCOBALAMIN [Concomitant]
  5. ASCORBIC ACID [Concomitant]
  6. VITAMIN E [Concomitant]

REACTIONS (2)
  - Skin disorder [Recovered/Resolved]
  - Urticaria [Recovered/Resolved]
